FAERS Safety Report 19812693 (Version 1)
Quarter: 2021Q3

REPORT INFORMATION
  Report Type: Spontaneous
  Country: US (occurrence: US)
  Receive Date: 20210910
  Receipt Date: 20210910
  Transmission Date: 20211014
  Serious: No
  Sender: FDA-Public Use
  Company Number: US-EIGER BIOPHARMACEUTICALS-EIG-2021-000003

PATIENT
  Sex: Female

DRUGS (1)
  1. ZOKINVY [Suspect]
     Active Substance: LONAFARNIB
     Indication: PROGERIA
     Dosage: 75 MG, BID (CAPSULE)
     Route: 048
     Dates: start: 20210211

REACTIONS (1)
  - Product dose omission issue [Recovered/Resolved]
